FAERS Safety Report 6538848-X (Version None)
Quarter: 2010Q1

REPORT INFORMATION
  Report Type: 
  Country: None (occurrence: None)
  Receive Date: 20100115
  Receipt Date: 20091215
  Transmission Date: 20100710
  Serious: No
  Sender: FDA-Public Use
  Company Number: PR-BAYER-200942976NA

PATIENT
  Age: 35 Year
  Sex: Female

DRUGS (1)
  1. AVELOX [Suspect]
     Indication: PNEUMONIA
     Dosage: UNIT DOSE: 400 MG

REACTIONS (2)
  - INSOMNIA [None]
  - TACHYCARDIA [None]
